FAERS Safety Report 25071658 (Version 2)
Quarter: 2025Q2

REPORT INFORMATION
  Report Type: Report from Study
  Country: CA (occurrence: CA)
  Receive Date: 20250313
  Receipt Date: 20250403
  Transmission Date: 20250717
  Serious: No
  Sender: ABBVIE
  Company Number: CA-ABBVIE-6169229

PATIENT
  Age: 28 Year
  Sex: Female

DRUGS (1)
  1. SKYRIZI [Suspect]
     Active Substance: RISANKIZUMAB-RZAA
     Indication: Crohn^s disease
     Route: 042
     Dates: start: 20250206

REACTIONS (2)
  - Oropharyngeal pain [Recovering/Resolving]
  - Respiratory tract congestion [Recovering/Resolving]

NARRATIVE: CASE EVENT DATE: 20250101
